FAERS Safety Report 9693885 (Version 1)
Quarter: 2013Q4

REPORT INFORMATION
  Report Type: Spontaneous
  Country: GB (occurrence: None)
  Receive Date: 20131114
  Receipt Date: 20131114
  Transmission Date: 20140711
  Serious: Yes (Other)
  Sender: FDA-Public Use
  Company Number: 2003073

PATIENT
  Sex: Female

DRUGS (4)
  1. DACARBAZINE [Suspect]
     Dosage: UNKNOWN, UNKNOWN, TRANSPLACENTAL
     Route: 064
  2. (DOXORUBICIN HYDROCHLORIDE) [Suspect]
     Dosage: UNKNOWN, UNKNOWN, TRANSPLACENTAL
     Route: 064
  3. VINBLASTINE SULFATE [Suspect]
     Dosage: UNKNOWN, UNKNOWN, TRANSPLACENTAL
     Route: 064
  4. BLEOMYCIN [Suspect]
     Dosage: RECEIVED FROM 18 WEEKS INTO PREGNANCY TO DAY OF BIRTH
     Route: 064

REACTIONS (2)
  - Maternal drugs affecting foetus [None]
  - Jaundice neonatal [None]
